FAERS Safety Report 8920456 (Version 1)
Quarter: 2012Q4

REPORT INFORMATION
  Report Type: 
  Country: US (occurrence: US)
  Receive Date: 20121121
  Receipt Date: 20121121
  Transmission Date: 20130627
  Serious: Yes (Hospitalization, Other)
  Sender: FDA-Public Use
  Company Number: US-ASTRAZENECA-2012SE85923

PATIENT
  Age: 16 Year
  Sex: Female
  Weight: 54.4 kg

DRUGS (7)
  1. SEROQUEL [Suspect]
     Indication: HALLUCINATION
     Route: 048
  2. SEROQUEL [Suspect]
     Indication: PARANOIA
     Route: 048
  3. RISPERDAL [Suspect]
     Indication: HALLUCINATION
     Route: 048
  4. RISPERDAL [Suspect]
     Indication: PARANOIA
     Route: 048
  5. GEODON [Suspect]
     Indication: SCHIZOPHRENIA
     Route: 048
     Dates: start: 20120827
  6. GEODON [Suspect]
     Indication: SCHIZOPHRENIA
     Route: 048
     Dates: start: 20120911
  7. GEODON [Suspect]
     Indication: SCHIZOPHRENIA
     Route: 048
     Dates: start: 20120915, end: 20120916

REACTIONS (10)
  - Hallucination [Unknown]
  - Paranoia [Unknown]
  - Amnesia [Recovering/Resolving]
  - Seizure like phenomena [Recovering/Resolving]
  - Adverse drug reaction [Unknown]
  - Dizziness [Unknown]
  - Dysphagia [Unknown]
  - Dyspnoea [Unknown]
  - Off label use [Unknown]
  - Drug ineffective for unapproved indication [Unknown]
